FAERS Safety Report 5603356-7 (Version None)
Quarter: 2008Q1

REPORT INFORMATION
  Report Type: 
  Country: None (occurrence: None)
  Receive Date: 20080122
  Receipt Date: 20080114
  Transmission Date: 20080703
  Serious: Yes (Other)
  Sender: FDA-Public Use
  Company Number: GXKR2008GB00761

PATIENT
  Age: 42 Year
  Sex: Female

DRUGS (3)
  1. PROPRANOLOL [Suspect]
     Dosage: ORAL
     Route: 048
     Dates: start: 20070801, end: 20071001
  2. BUSPAR [Suspect]
     Dosage: 5 MG,TID, ORAL
     Route: 048
     Dates: start: 20070801, end: 20071101
  3. EFFEXOR [Suspect]
     Dosage: 75 MG, QD, ORAL
     Route: 048
     Dates: start: 20071113

REACTIONS (9)
  - BEDRIDDEN [None]
  - BURNING SENSATION [None]
  - DIZZINESS POSTURAL [None]
  - HEADACHE [None]
  - HYPOTENSION [None]
  - LETHARGY [None]
  - MYDRIASIS [None]
  - NAUSEA [None]
  - VISION BLURRED [None]
